FAERS Safety Report 9258169 (Version 2)
Quarter: 2013Q3

REPORT INFORMATION
  Report Type: Spontaneous
  Country: US (occurrence: None)
  Receive Date: 20130423
  Receipt Date: 20130709
  Transmission Date: 20140515
  Serious: Yes (Hospitalization)
  Sender: FDA-Public Use
  Company Number: US-ALKEM-000035

PATIENT
  Age: 15 Year
  Sex: Female

DRUGS (2)
  1. QUETIAPINE [Suspect]
  2. METFORMIN [Suspect]

REACTIONS (14)
  - Intentional overdose [None]
  - Lactic acidosis [None]
  - Somnolence [None]
  - Hypoglycaemia [None]
  - Hypotension [None]
  - Self-medication [None]
  - Vomiting [None]
  - Nausea [None]
  - Blood glucose increased [None]
  - Haemodialysis [None]
  - Laceration [None]
  - Electrocardiogram QT prolonged [None]
  - Blood insulin decreased [None]
  - Procedural hypotension [None]
